FAERS Safety Report 18584837 (Version 1)
Quarter: 2020Q4

REPORT INFORMATION
  Report Type: Spontaneous
  Country: US (occurrence: US)
  Receive Date: 20201207
  Receipt Date: 20201207
  Transmission Date: 20210114
  Serious: No
  Sender: FDA-Public Use
  Company Number: US-ASTRAZENECA-2020SF50793

PATIENT
  Age: 71 Year
  Sex: Female

DRUGS (1)
  1. PULMICORT FLEXHALER [Suspect]
     Active Substance: BUDESONIDE
     Route: 055
     Dates: start: 20201107

REACTIONS (5)
  - Cough [Unknown]
  - Hypopnoea [Unknown]
  - Dysphonia [Unknown]
  - Device issue [Unknown]
  - Drug ineffective [Unknown]
